FAERS Safety Report 9102790 (Version 3)
Quarter: 2014Q4

REPORT INFORMATION
  Report Type: Spontaneous
  Country: FR (occurrence: FR)
  Receive Date: 20130218
  Receipt Date: 20141208
  Transmission Date: 20150529
  Serious: Yes (Hospitalization)
  Sender: FDA-Public Use
  Company Number: FR-TEVA-385406ISR

PATIENT
  Age: 20 Year
  Sex: Male

DRUGS (3)
  1. INEXIUM [Suspect]
     Active Substance: ESOMEPRAZOLE
     Indication: GASTROOESOPHAGEAL REFLUX DISEASE
     Dosage: 1 DOSAGE FORMS DAILY;
     Route: 048
     Dates: start: 20121228, end: 20121229
  2. AIROMIR AUTOHALER [Suspect]
     Active Substance: ALBUTEROL SULFATE
     Indication: ASTHMA
     Dosage: 1 DOSAGE FORMS DAILY; 1 TO 2 PUFF(S) PER DAY
     Route: 055
     Dates: start: 20121228, end: 20121229
  3. SINGULAIR [Suspect]
     Active Substance: MONTELUKAST SODIUM
     Indication: ASTHMA
     Dosage: 1 DOSAGE FORMS DAILY;
     Route: 048
     Dates: start: 20121228, end: 20121229

REACTIONS (4)
  - Respiratory disorder [None]
  - Atelectasis [None]
  - Pancreatitis [Recovering/Resolving]
  - Pleural effusion [None]

NARRATIVE: CASE EVENT DATE: 20121229
